FAERS Safety Report 15780597 (Version 2)
Quarter: 2019Q1

REPORT INFORMATION
  Report Type: Spontaneous
  Country: US (occurrence: US)
  Receive Date: 20190102
  Receipt Date: 20190123
  Transmission Date: 20190417
  Serious: No
  Sender: FDA-Public Use
  Company Number: US-ELI_LILLY_AND_COMPANY-US201812012414

PATIENT
  Age: 74 Year
  Sex: Male

DRUGS (3)
  1. TRULICITY [Suspect]
     Active Substance: DULAGLUTIDE
     Dosage: 1.5 MG, WEEKLY (1/W)
     Route: 058
  2. TRULICITY [Suspect]
     Active Substance: DULAGLUTIDE
     Dosage: 1.5 MG, WEEKLY (1/W)
     Route: 058
  3. TRULICITY [Suspect]
     Active Substance: DULAGLUTIDE
     Indication: PRODUCT USED FOR UNKNOWN INDICATION
     Dosage: 1.5 MG, WEEKLY (1/W)
     Route: 058
     Dates: start: 20181219

REACTIONS (7)
  - Faeces hard [Recovered/Resolved]
  - Gastrooesophageal reflux disease [Recovering/Resolving]
  - Dry mouth [Recovering/Resolving]
  - Breath odour [Not Recovered/Not Resolved]
  - Dysgeusia [Recovering/Resolving]
  - Dyspepsia [Recovering/Resolving]
  - Infrequent bowel movements [Unknown]

NARRATIVE: CASE EVENT DATE: 201812
